FAERS Safety Report 13472907 (Version 2)
Quarter: 2017Q2

REPORT INFORMATION
  Report Type: Spontaneous
  Country: US (occurrence: US)
  Receive Date: 20170424
  Receipt Date: 20170608
  Transmission Date: 20170830
  Serious: Yes (Life-Threatening, Disabling, Other)
  Sender: FDA-Public Use
  Company Number: PHEH2017US011786

PATIENT
  Age: 60 Year
  Sex: Female

DRUGS (6)
  1. CHOLECALCIFEROL [Concomitant]
     Active Substance: CHOLECALCIFEROL
     Indication: PRODUCT USED FOR UNKNOWN INDICATION
     Dosage: 2000 U, QD
     Route: 065
  2. RANITIDINE. [Concomitant]
     Active Substance: RANITIDINE
     Indication: PRODUCT USED FOR UNKNOWN INDICATION
     Dosage: UNK
     Route: 065
  3. PROMARIT [Concomitant]
     Indication: PRODUCT USED FOR UNKNOWN INDICATION
     Dosage: UNK
     Route: 065
  4. RECLAST [Suspect]
     Active Substance: ZOLEDRONIC ACID
     Indication: OSTEOPOROSIS
     Dosage: 5 MG, ONCE/SINGLE
     Route: 042
     Dates: start: 20170331
  5. CALCIUM [Concomitant]
     Active Substance: CALCIUM
     Indication: PRODUCT USED FOR UNKNOWN INDICATION
     Dosage: UNK
     Route: 065
  6. SYNTHROID [Concomitant]
     Active Substance: LEVOTHYROXINE SODIUM
     Indication: PRODUCT USED FOR UNKNOWN INDICATION
     Dosage: UNK
     Route: 065

REACTIONS (19)
  - Systemic inflammatory response syndrome [Recovering/Resolving]
  - Aortic stenosis [Recovering/Resolving]
  - Platelet count increased [Unknown]
  - Erythema [Unknown]
  - Red blood cell sedimentation rate increased [Unknown]
  - Fatigue [Recovering/Resolving]
  - Brain natriuretic peptide increased [Unknown]
  - Alanine aminotransferase increased [Unknown]
  - C-reactive protein increased [Unknown]
  - Aspartate aminotransferase increased [Unknown]
  - Pyrexia [Recovering/Resolving]
  - White blood cell count increased [Unknown]
  - Blood alkaline phosphatase increased [Unknown]
  - Joint swelling [Recovering/Resolving]
  - Nausea [Recovering/Resolving]
  - Dehydration [Unknown]
  - Chest discomfort [Recovering/Resolving]
  - Hepatic enzyme increased [Unknown]
  - Pain [Recovering/Resolving]

NARRATIVE: CASE EVENT DATE: 20170401
